FAERS Safety Report 5734016-X (Version None)
Quarter: 2008Q2

REPORT INFORMATION
  Report Type: 
  Country: None (occurrence: None)
  Receive Date: 20080509
  Receipt Date: 20080428
  Transmission Date: 20081010
  Serious: Yes (Other)
  Sender: FDA-Public Use
  Company Number: GB-ELI_LILLY_AND_COMPANY-GB200801003795

PATIENT
  Age: 21 Year
  Sex: Male

DRUGS (2)
  1. STRATTERA [Suspect]
     Dosage: 50 MG, UNKNOWN
     Route: 048
  2. INTERFERON [Concomitant]
     Dosage: UNK, UNKNOWN
     Route: 065

REACTIONS (3)
  - HEPATITIS B [None]
  - LETHARGY [None]
  - VOMITING [None]
